FAERS Safety Report 8901793 (Version 1)
Quarter: 2012Q4

REPORT INFORMATION
  Report Type: Spontaneous
  Country: US (occurrence: None)
  Receive Date: 20121105
  Receipt Date: 20121105
  Transmission Date: 20130627
  Serious: Yes (Other)
  Sender: FDA-Public Use
  Company Number: CIP-2012-00383

PATIENT
  Sex: Female

DRUGS (3)
  1. CARBOPLATIN [Suspect]
     Dosage: AUC 5 (day 1 of 28 day cycle), infusion } 15 minutes
  2. DOXORUBICIN (DOXORUBICIN) (DOXORUBICIN) [Suspect]
     Dosage: (30 mg/m2, day 1 of 28 day cycle), infusion 90 minutes to 1 hour
  3. BEVACIZUMAB [Suspect]
     Dosage: (10 mg/kg, days 1 and 15 every 28 day cycle), infusion 90 minutes to 1 hour

REACTIONS (2)
  - Large intestinal obstruction [None]
  - Small intestinal perforation [None]
